FAERS Safety Report 7888162-5 (Version None)
Quarter: 2011Q4

REPORT INFORMATION
  Report Type: 
  Country: None (occurrence: None)
  Receive Date: 20111102
  Receipt Date: 20111102
  Transmission Date: 20120403
  Serious: Yes (Hospitalization)
  Sender: FDA-Public Use
  Company Number: None

PATIENT
  Sex: Female
  Weight: 75 kg

DRUGS (17)
  1. DECADRON [Concomitant]
  2. SIMVASTATIN [Concomitant]
  3. Z BEC (ZINC, B-COMPLEX, VIT E + C) [Concomitant]
  4. ADVAIR DISKUS 100/50 [Concomitant]
  5. TAXOL [Suspect]
     Dosage: 322 MG
     Dates: end: 20111012
  6. COMPAZINE [Concomitant]
  7. MULTIVITAMIN [Suspect]
  8. MIACALCIN [Concomitant]
  9. ZOFRAN [Concomitant]
  10. IBUPROPHEN [Concomitant]
  11. PROAIR HFA [Concomitant]
  12. FLONASE [Concomitant]
  13. SINGULAIR [Concomitant]
  14. CARBOPLATIN [Suspect]
     Dosage: 525 MG
     Dates: end: 20111012
  15. ACTONEL [Concomitant]
  16. CLARITIN [Concomitant]
  17. ZOLOFT [Concomitant]

REACTIONS (1)
  - FEBRILE NEUTROPENIA [None]
